FAERS Safety Report 8102149-9 (Version None)
Quarter: 2012Q1

REPORT INFORMATION
  Report Type: 
  Country: None (occurrence: None)
  Receive Date: 20120201
  Receipt Date: 20120125
  Transmission Date: 20120608
  Serious: Yes (Hospitalization)
  Sender: FDA-Public Use
  Company Number: US-BIOGENIDEC-2008BI021694

PATIENT
  Age: 51 Year
  Sex: Female
  Weight: 83 kg

DRUGS (11)
  1. TYSABRI [Suspect]
     Indication: MULTIPLE SCLEROSIS
     Route: 042
     Dates: start: 20071204
  2. KLONOPIN [Concomitant]
  3. ELAVIL [Concomitant]
  4. TIZANIDINE HCL [Concomitant]
  5. FLEXERIL [Concomitant]
  6. BACLOFEN [Concomitant]
  7. CITALOPRAM [Concomitant]
  8. ATENOLOL [Concomitant]
  9. TEGRETOL [Concomitant]
  10. PROVIGIL [Concomitant]
  11. PROTONIX [Concomitant]

REACTIONS (11)
  - NECK PAIN [None]
  - SPINAL COLUMN STENOSIS [None]
  - HEADACHE [None]
  - SPINAL CORD COMPRESSION [None]
  - LIGAMENT RUPTURE [None]
  - APHAGIA [None]
  - SPINAL FUSION SURGERY [None]
  - MEMORY IMPAIRMENT [None]
  - INTERVERTEBRAL DISC PROTRUSION [None]
  - INTERVERTEBRAL DISC OPERATION [None]
  - ROAD TRAFFIC ACCIDENT [None]
